FAERS Safety Report 8839744 (Version 2)
Quarter: 2012Q4

REPORT INFORMATION
  Report Type: Spontaneous
  Country: DE (occurrence: None)
  Receive Date: 20121011
  Receipt Date: 20121129
  Transmission Date: 20130627
  Serious: Yes (Hospitalization)
  Sender: FDA-Public Use
  Company Number: 2012-529

PATIENT
  Age: 44 Year
  Sex: Female
  Weight: 68 kg

DRUGS (7)
  1. PRIALT [Suspect]
     Indication: PAIN
     Dosage: 0.92 mcg, once/hour, Intrathecal
     Route: 037
     Dates: start: 201001, end: 2011
  2. PRIALT [Suspect]
     Indication: PAIN
     Dosage: 0.75 mcg, once/hour, Intrathecal
     Route: 037
     Dates: start: 2011, end: 201102
  3. PRIALT [Suspect]
     Indication: PAIN
     Route: 037
     Dates: start: 2011, end: 2011
  4. PRIALT [Suspect]
     Indication: PAIN
     Dosage: 1.0 MCG, ONCE/HOUR, INTRATHECAL
     Route: 037
  5. PRIALT [Suspect]
     Indication: PAIN
     Dosage: ONCE/HOUR
     Route: 037
  6. PRIALT [Suspect]
     Indication: PAIN
     Dosage: UNK MCG, ONCE/HOUR, INTRATHECAL ONGOING
     Route: 037
  7. MORPHINE HYDROCHLORIDE [Suspect]
     Indication: PAIN

REACTIONS (4)
  - Eating disorder [None]
  - Weight decreased [None]
  - Drug withdrawal syndrome [None]
  - Migraine [None]
